FAERS Safety Report 8729634 (Version 8)
Quarter: 2014Q2

REPORT INFORMATION
  Report Type: Spontaneous
  Country: CA (occurrence: CA)
  Receive Date: 20120817
  Receipt Date: 20140528
  Transmission Date: 20141212
  Serious: Yes (Hospitalization, Other)
  Sender: FDA-Public Use
  Company Number: CA-ROCHE-1101392

PATIENT
  Age: 59 Year
  Sex: Female
  Weight: 136.2 kg

DRUGS (10)
  1. XOLAIR [Suspect]
     Indication: ASTHMA
     Route: 058
     Dates: start: 20100201
  2. XOLAIR [Suspect]
     Route: 058
     Dates: start: 20121030
  3. XOLAIR [Suspect]
     Route: 058
     Dates: start: 20121227
  4. XOLAIR [Suspect]
     Route: 058
     Dates: start: 20140325
  5. XOLAIR [Suspect]
     Route: 058
     Dates: start: 20140424
  6. ADVAIR [Concomitant]
  7. SALBUTAMOL [Concomitant]
  8. THEOPHYLLINE [Concomitant]
  9. SINGULAIR [Concomitant]
  10. PREDNISONE [Concomitant]
     Route: 065
     Dates: start: 20120225

REACTIONS (12)
  - Asthma [Unknown]
  - Pyrexia [Unknown]
  - Sputum discoloured [Recovering/Resolving]
  - Nasopharyngitis [Unknown]
  - Lower respiratory tract infection [Unknown]
  - Blood pressure increased [Unknown]
  - Intervertebral disc degeneration [Unknown]
  - Intervertebral disc protrusion [Unknown]
  - Dyspnoea [Unknown]
  - Heart rate increased [Unknown]
  - Dyspnoea exertional [Unknown]
  - Weight increased [Unknown]
